FAERS Safety Report 22189133 (Version 1)
Quarter: 2023Q2

REPORT INFORMATION
  Report Type: Report from Study
  Country: CN (occurrence: CN)
  Receive Date: 20230410
  Receipt Date: 20230410
  Transmission Date: 20230722
  Serious: Yes (Other)
  Sender: FDA-Public Use
  Company Number: CN-SA-0002542259

PATIENT
  Age: 15 Month
  Sex: Male
  Weight: 10.5 kg

DRUGS (6)
  1. AVALGLUCOSIDASE ALFA [Suspect]
     Active Substance: AVALGLUCOSIDASE ALFA
     Dosage: 368 MG, QOW; INFUSION RATE/FLOW RATE (ML/H):  1, 2.5, 7.5, 12.5 AND 17.5
     Route: 042
     Dates: start: 20220913
  2. LEVOCARNITINE [Concomitant]
     Active Substance: LEVOCARNITINE
     Indication: Hypertrophic cardiomyopathy
     Dosage: 5/ML
     Dates: start: 20220817, end: 20220910
  3. COENZYME Q10 [Concomitant]
     Active Substance: DIETARY SUPPLEMENT\UBIDECARENONE
     Indication: Patent ductus arteriosus
     Dosage: 30MG
     Dates: start: 20220817, end: 20220826
  4. AMMONIUM GLYCYRRHIZATE\CYSTEINE HYDROCHLORIDE\GLYCINE [Concomitant]
     Active Substance: AMMONIUM GLYCYRRHIZATE\CYSTEINE HYDROCHLORIDE\GLYCINE
     Dosage: 25MG
     Dates: start: 20220902, end: 20220910
  5. AMBUTEROL [Concomitant]
     Dosage: 5ML
     Dates: start: 20220902, end: 20220910
  6. CEFACLOR [Concomitant]
     Active Substance: CEFACLOR
     Dosage: 187.5MG
     Dates: start: 20220902, end: 20220910

REACTIONS (1)
  - COVID-19 [Recovered/Resolved]

NARRATIVE: CASE EVENT DATE: 20221220
